FAERS Safety Report 9781321 (Version 1)
Quarter: 2013Q4

REPORT INFORMATION
  Report Type: Spontaneous
  Country: US (occurrence: None)
  Receive Date: 20131223
  Receipt Date: 20131223
  Transmission Date: 20140711
  Serious: Yes (Other)
  Sender: FDA-Public Use
  Company Number: None

PATIENT
  Sex: Female

DRUGS (9)
  1. GLEEVEC [Suspect]
     Indication: NEOPLASM MALIGNANT
     Route: 048
     Dates: start: 201109
  2. TRAMADOL [Concomitant]
  3. EFFEXOR [Concomitant]
  4. LORAZEPAM [Concomitant]
  5. VIT E [Concomitant]
  6. VIT C [Concomitant]
  7. MULTIVITAMIN [Concomitant]
  8. CALCIUM [Concomitant]
  9. GLEEVEC [Suspect]

REACTIONS (3)
  - Lacrimation increased [None]
  - Bone pain [None]
  - Nausea [None]
